FAERS Safety Report 24546776 (Version 1)
Quarter: 2024Q4

REPORT INFORMATION
  Report Type: Spontaneous
  Country: JP (occurrence: JP)
  Receive Date: 20241024
  Receipt Date: 20241024
  Transmission Date: 20250115
  Serious: Yes (Other)
  Sender: JOHNSON AND JOHNSON
  Company Number: JP-JNJFOC-20240900549

PATIENT
  Age: 73 Year
  Sex: Male
  Weight: 60.4 kg

DRUGS (1)
  1. ERLEADA [Suspect]
     Active Substance: APALUTAMIDE
     Indication: Product used for unknown indication
     Dosage: DOSE UNKNOWN
     Route: 048
     Dates: start: 20240226, end: 20240819

REACTIONS (3)
  - Interstitial lung disease [Unknown]
  - Cold type haemolytic anaemia [Unknown]
  - Infection [Unknown]

NARRATIVE: CASE EVENT DATE: 20240101
